FAERS Safety Report 5073099-X (Version None)
Quarter: 2006Q3

REPORT INFORMATION
  Report Type: 
  Country: None (occurrence: None)
  Receive Date: 20060802
  Receipt Date: 20060719
  Transmission Date: 20061208
  Serious: Yes (Hospitalization)
  Sender: FDA-Public Use
  Company Number: 2006PV017816

PATIENT
  Age: 66 Year
  Sex: Female
  Weight: 95.2554 kg

DRUGS (5)
  1. SYMLIN [Suspect]
     Indication: DIABETES MELLITUS NON-INSULIN-DEPENDENT
     Dosage: 60 MCG;BID;SC
     Route: 058
     Dates: start: 20060101, end: 20060601
  2. ACTOS [Concomitant]
  3. METFORMIN [Concomitant]
  4. HUMULIN 70/30 [Concomitant]
  5. HUMALOG [Concomitant]

REACTIONS (8)
  - CONDITION AGGRAVATED [None]
  - FALL [None]
  - FOOT AMPUTATION [None]
  - NAUSEA [None]
  - OEDEMA PERIPHERAL [None]
  - OSTEOMYELITIS [None]
  - SKIN LESION [None]
  - WEIGHT FLUCTUATION [None]
